FAERS Safety Report 8213298-9 (Version None)
Quarter: 2012Q1

REPORT INFORMATION
  Report Type: 
  Country: None (occurrence: None)
  Receive Date: 20120315
  Receipt Date: 20120312
  Transmission Date: 20120608
  Serious: Yes (Other)
  Sender: FDA-Public Use
  Company Number: PHHY2012BR022036

PATIENT
  Age: 65 Year
  Sex: Female

DRUGS (2)
  1. EXFORGE HCT [Suspect]
     Indication: HYPERTENSION
     Dosage: 1 DF (160MG VALS/12.5MGAMLO/10MG HYDROCHLOROTHIAZIDE), DAILY
  2. EXFORGE HCT [Suspect]
     Dosage: 1 DF, (160MG VALS/12.5MGAMLO/5MG HYDROCHLOROTHIAZIDE), DAILY
     Dates: end: 20120307

REACTIONS (2)
  - RENAL CANCER [None]
  - OEDEMA PERIPHERAL [None]
